FAERS Safety Report 9331697 (Version 1)
Quarter: 2013Q2

REPORT INFORMATION
  Report Type: Spontaneous
  Country: US (occurrence: None)
  Receive Date: 20130603
  Receipt Date: 20130603
  Transmission Date: 20140414
  Serious: Yes (Hospitalization)
  Sender: FDA-Public Use
  Company Number: 2012-02703

PATIENT
  Age: 68 Year
  Sex: Male

DRUGS (6)
  1. THERACYS [Suspect]
     Indication: BLADDER CANCER
     Dates: start: 20120213, end: 20120227
  2. AMIODARONE [Concomitant]
  3. ASPIRIN [Concomitant]
  4. LISINOPRIL [Concomitant]
  5. PROPANOLOL [Concomitant]
  6. SIMVASTATIN [Concomitant]

REACTIONS (4)
  - Haematuria [None]
  - Full blood count decreased [None]
  - Haemoglobin decreased [None]
  - Haematocrit decreased [None]
